FAERS Safety Report 14146790 (Version 3)
Quarter: 2017Q4

REPORT INFORMATION
  Report Type: Report from Study
  Country: None (occurrence: AU)
  Receive Date: 20171101
  Receipt Date: 20171110
  Transmission Date: 20180321
  Serious: Yes (Death, Hospitalization, Other)
  Sender: FDA-Public Use
  Company Number: AU-ABBVIE-17K-008-2148425-00

PATIENT
  Age: 75 Year
  Sex: Male

DRUGS (1)
  1. DUODOPA [Suspect]
     Active Substance: CARBIDOPA\LEVODOPA
     Indication: PARKINSON^S DISEASE
     Dosage: 16HRLY INFUSION VIA PEG J
     Route: 050
     Dates: start: 20170127, end: 20171029

REACTIONS (4)
  - Loss of consciousness [Unknown]
  - Gait inability [Unknown]
  - Fall [Fatal]
  - Femoral neck fracture [Unknown]

NARRATIVE: CASE EVENT DATE: 201710
